FAERS Safety Report 18095201 (Version 3)
Quarter: 2020Q3

REPORT INFORMATION
  Report Type: Report from Study
  Country: None (occurrence: US)
  Receive Date: 20200731
  Receipt Date: 20200908
  Transmission Date: 20201103
  Serious: Yes (Hospitalization, Other)
  Sender: FDA-Public Use
  Company Number: US-ABBVIE-20K-163-3504395-00

PATIENT
  Age: 64 Year
  Sex: Female

DRUGS (3)
  1. PREDNISONE. [Suspect]
     Active Substance: PREDNISONE
     Indication: PRODUCT USED FOR UNKNOWN INDICATION
     Route: 065
  2. HUMIRA [Suspect]
     Active Substance: ADALIMUMAB
     Indication: COLITIS ULCERATIVE
     Dosage: CITRATE FREE
     Route: 058
  3. HUMIRA [Suspect]
     Active Substance: ADALIMUMAB
     Indication: CROHN^S DISEASE

REACTIONS (11)
  - Colon injury [Unknown]
  - Proctalgia [Unknown]
  - Furuncle [Unknown]
  - Bladder ulcer [Unknown]
  - Gastrointestinal infection [Unknown]
  - Sensory disturbance [Not Recovered/Not Resolved]
  - Drug ineffective [Unknown]
  - Malaise [Unknown]
  - Colitis ulcerative [Not Recovered/Not Resolved]
  - Large intestinal ulcer [Unknown]
  - Illness [Unknown]

NARRATIVE: CASE EVENT DATE: 202007
